FAERS Safety Report 17692242 (Version 2)
Quarter: 2020Q2

REPORT INFORMATION
  Report Type: Spontaneous
  Country: US (occurrence: US)
  Receive Date: 20200422
  Receipt Date: 20200427
  Transmission Date: 20200714
  Serious: No
  Sender: FDA-Public Use
  Company Number: US-PFIZER INC-2020157146

PATIENT
  Age: 63 Year
  Sex: Male

DRUGS (1)
  1. LYRICA [Suspect]
     Active Substance: PREGABALIN
     Indication: SPINAL OSTEOARTHRITIS
     Dosage: 300 MG, 2X/DAY (1 CAPSULE TWICE A DAY 90 DAYS)
     Route: 048

REACTIONS (3)
  - Product use in unapproved indication [Unknown]
  - Hypoacusis [Unknown]
  - Off label use [Unknown]
